FAERS Safety Report 15847307 (Version 9)
Quarter: 2024Q1

REPORT INFORMATION
  Report Type: Other
  Country: DE (occurrence: None)
  Receive Date: 20190121
  Receipt Date: 20240214
  Transmission Date: 20240410
  Serious: Yes (Other)
  Sender: FDA-Public Use
  Company Number: DE-ROCHE-2145717

PATIENT
  Age: 29 Year
  Sex: Female

DRUGS (28)
  1. OCREVUS [Suspect]
     Active Substance: OCRELIZUMAB
     Indication: Relapsing-remitting multiple sclerosis
     Dosage: 18/JUN/2018- 600 MG EVERY 198 DAYS 237 DAYS, 600 MG EVERY 209 DAYS.
     Route: 042
     Dates: start: 20180618
  2. OCREVUS [Suspect]
     Active Substance: OCRELIZUMAB
     Route: 042
     Dates: start: 20180702
  3. OCREVUS [Suspect]
     Active Substance: OCRELIZUMAB
     Route: 042
     Dates: start: 20190108
  4. OCREVUS [Suspect]
     Active Substance: OCRELIZUMAB
     Route: 042
     Dates: start: 20190709
  5. OCREVUS [Suspect]
     Active Substance: OCRELIZUMAB
     Route: 042
  6. OCREVUS [Suspect]
     Active Substance: OCRELIZUMAB
     Route: 042
     Dates: start: 20200729
  7. OCREVUS [Suspect]
     Active Substance: OCRELIZUMAB
     Route: 042
     Dates: start: 20210209
  8. OCREVUS [Suspect]
     Active Substance: OCRELIZUMAB
     Route: 042
     Dates: start: 20210810
  9. LEVETIRACETAM [Suspect]
     Active Substance: LEVETIRACETAM
     Indication: Rosacea
     Route: 065
  10. LEVETIRACETAM [Suspect]
     Active Substance: LEVETIRACETAM
     Dosage: 1-0-1.5
     Route: 065
  11. LEVETIRACETAM [Suspect]
     Active Substance: LEVETIRACETAM
     Dosage: 1-1-1.5
     Route: 065
  12. LEVETIRACETAM [Suspect]
     Active Substance: LEVETIRACETAM
     Route: 065
  13. LEVETIRACETAM [Suspect]
     Active Substance: LEVETIRACETAM
     Dosage: 1.5-0-2
     Route: 065
  14. LEVETIRACETAM [Suspect]
     Active Substance: LEVETIRACETAM
     Dosage: 2 - 0 - 2,
     Route: 065
  15. LAMOTRIGINE [Suspect]
     Active Substance: LAMOTRIGINE
     Indication: Product used for unknown indication
     Route: 065
     Dates: start: 20200608
  16. LAMOTRIGINE [Suspect]
     Active Substance: LAMOTRIGINE
     Dosage: PLANNED DOSAGE INCREASE
     Route: 065
  17. CITALOPRAM [Concomitant]
     Active Substance: CITALOPRAM HYDROBROMIDE
  18. CITALOPRAM [Concomitant]
     Active Substance: CITALOPRAM HYDROBROMIDE
  19. CITALOPRAM [Concomitant]
     Active Substance: CITALOPRAM HYDROBROMIDE
     Dosage: 1-0-0
  20. CITALOPRAM [Concomitant]
     Active Substance: CITALOPRAM HYDROBROMIDE
  21. DIMETHINDENE [Concomitant]
     Active Substance: DIMETHINDENE
     Indication: Premedication
  22. VALPROATE [Concomitant]
     Active Substance: VALPROIC ACID
  23. VALPROATE [Concomitant]
     Active Substance: VALPROIC ACID
  24. VALPROATE [Concomitant]
     Active Substance: VALPROIC ACID
  25. TAVOR (LORAZEPAM) [Concomitant]
     Active Substance: LORAZEPAM
  26. LACOSAMIDE [Concomitant]
     Active Substance: LACOSAMIDE
     Route: 048
  27. LACOSAMIDE [Concomitant]
     Active Substance: LACOSAMIDE
  28. LACOSAMIDE [Concomitant]
     Active Substance: LACOSAMIDE
     Dosage: 100MG-0-100MG

REACTIONS (49)
  - Epilepsy [Recovered/Resolved]
  - Epilepsy [Recovered/Resolved]
  - Multiple sclerosis [Not Recovered/Not Resolved]
  - Foot fracture [Not Recovered/Not Resolved]
  - Insomnia [Recovered/Resolved]
  - Fatigue [Recovered/Resolved]
  - Headache [Recovered/Resolved]
  - Nasopharyngitis [Recovered/Resolved]
  - Dizziness [Recovered/Resolved]
  - Road traffic accident [Unknown]
  - Neck pain [Recovered/Resolved]
  - Pain in extremity [Recovered/Resolved]
  - Headache [Recovered/Resolved]
  - Depression [Recovered/Resolved]
  - Dysaesthesia [Recovered/Resolved]
  - Rosacea [Recovered/Resolved]
  - Muscular weakness [Not Recovered/Not Resolved]
  - Irritability [Recovered/Resolved]
  - Mood swings [Recovered/Resolved]
  - Depressed mood [Recovered/Resolved]
  - Rash [Recovering/Resolving]
  - Balance disorder [Recovered/Resolved]
  - Micturition disorder [Not Recovered/Not Resolved]
  - Abdominal pain [Recovered/Resolved]
  - Vaginal haemorrhage [Recovered/Resolved]
  - Myalgia [Recovered/Resolved]
  - Listless [Recovered/Resolved]
  - Erythema of eyelid [Recovered/Resolved]
  - Eyelid margin crusting [Recovered/Resolved]
  - Dry eye [Recovered/Resolved]
  - Eye irritation [Recovered/Resolved]
  - Hyperhidrosis [Recovered/Resolved]
  - Neuralgia [Recovered/Resolved]
  - Rash [Recovered/Resolved]
  - Eyelid skin dryness [Recovered/Resolved]
  - Eyelid exfoliation [Recovered/Resolved]
  - Tinea versicolour [Recovered/Resolved]
  - Dizziness [Not Recovered/Not Resolved]
  - Pain [Not Recovered/Not Resolved]
  - Vasodilatation [Recovered/Resolved]
  - Urinary tract infection [Recovered/Resolved]
  - Cough [Recovered/Resolved]
  - Diarrhoea [Not Recovered/Not Resolved]
  - Fatigue [Not Recovered/Not Resolved]
  - COVID-19 [Not Recovered/Not Resolved]
  - Ear discomfort [Recovering/Resolving]
  - Tinnitus [Recovering/Resolving]
  - Nasopharyngitis [Recovered/Resolved]
  - Rash [Recovered/Resolved]

NARRATIVE: CASE EVENT DATE: 20180618
